FAERS Safety Report 10161425 (Version 2)
Quarter: 2014Q2

REPORT INFORMATION
  Report Type: Spontaneous
  Country: US (occurrence: US)
  Receive Date: 20140509
  Receipt Date: 20140509
  Transmission Date: 20141212
  Serious: Yes (Hospitalization)
  Sender: FDA-Public Use
  Company Number: US-BEH-2013036865

PATIENT
  Sex: Female

DRUGS (3)
  1. HIZENTRA [Suspect]
  2. HIZENTRA [Suspect]
     Indication: IMMUNODEFICIENCY COMMON VARIABLE
  3. GAMMAGARD [Suspect]

REACTIONS (3)
  - Meningitis aseptic [Unknown]
  - Infection [Unknown]
  - Headache [Unknown]
